FAERS Safety Report 12082725 (Version 1)
Quarter: 2016Q1

REPORT INFORMATION
  Report Type: Spontaneous
  Country: US (occurrence: None)
  Receive Date: 20160212
  Receipt Date: 20160212
  Transmission Date: 20160526
  Serious: Yes (Disabling)
  Sender: FDA-Public Use
  Company Number: None

PATIENT
  Age: 53 Year
  Sex: Female
  Weight: 54.43 kg

DRUGS (17)
  1. WELLBUTRIN [Concomitant]
     Active Substance: BUPROPION HYDROCHLORIDE
  2. VITAMIN D3 [Concomitant]
     Active Substance: CHOLECALCIFEROL
  3. BIOTIN [Concomitant]
     Active Substance: BIOTIN
  4. B6 [Concomitant]
     Active Substance: PYRIDOXINE HYDROCHLORIDE
  5. SYMBICORT [Concomitant]
     Active Substance: BUDESONIDE\FORMOTEROL FUMARATE DIHYDRATE
  6. MSM [Suspect]
     Active Substance: DIMETHYL SULFONE
  7. FOLIC ACID. [Concomitant]
     Active Substance: FOLIC ACID
  8. TRIAMCINOLONE ACETONIDE TOPICAL CREAM 0.1% [Suspect]
     Active Substance: TRIAMCINOLONE ACETONIDE
     Indication: SKIN DISORDER
     Dosage: BID PRN,  TWICE DAILY, APLLIED TO  A SURFACE, USUALLY THE SKIN
     Route: 061
     Dates: start: 1994, end: 2014
  9. PROVENTIL HFA [Concomitant]
     Active Substance: ALBUTEROL SULFATE
  10. FLUTICASONE PROPIONATE NOSE SPRAY [Concomitant]
  11. CALCIUM CARBONATE. [Concomitant]
     Active Substance: CALCIUM CARBONATE
  12. VITAMIN B12 [Concomitant]
     Active Substance: CYANOCOBALAMIN
  13. ATORVASTATIN CALCIUM. [Concomitant]
     Active Substance: ATORVASTATIN CALCIUM
  14. ETODOLA [Concomitant]
  15. MULTI-VIT [Concomitant]
     Active Substance: VITAMINS
  16. BIPAP [Concomitant]
     Active Substance: DEVICE
  17. MAGNESIUM [Concomitant]
     Active Substance: MAGNESIUM

REACTIONS (3)
  - Benign neoplasm of adrenal gland [None]
  - Laboratory test interference [None]
  - Cushing^s syndrome [None]

NARRATIVE: CASE EVENT DATE: 20160210
